FAERS Safety Report 5418619-8 (Version None)
Quarter: 2007Q3

REPORT INFORMATION
  Report Type: 
  Country: None (occurrence: None)
  Receive Date: 20070817
  Receipt Date: 20070806
  Transmission Date: 20080115
  Serious: Yes (Other)
  Sender: FDA-Public Use
  Company Number: IE-PFIZER INC-2007018464

PATIENT
  Age: 48 Year
  Sex: Female
  Weight: 60 kg

DRUGS (13)
  1. CHAMPIX [Suspect]
     Indication: EX-SMOKER
     Route: 048
  2. ALL OTHER THERAPEUTIC PRODUCTS [Concomitant]
  3. UNIPHYLLIN ^MUNDIPHARMA^ [Concomitant]
     Route: 048
  4. IPRATROPIUM BROMIDE [Concomitant]
     Route: 055
  5. PULMICORT [Concomitant]
     Route: 055
  6. ZYPREXA [Concomitant]
     Route: 048
  7. PROZAC [Concomitant]
     Route: 048
  8. ZIMOVANE [Concomitant]
     Route: 048
  9. NEXIUM [Concomitant]
     Route: 048
  10. ACETAMINOPHEN W/ CODEINE [Concomitant]
     Route: 048
  11. DIAZEPAM [Concomitant]
     Route: 048
  12. LIPITOR [Concomitant]
     Route: 048
  13. PROCYCLIDINE HYDROCHLORIDE 2MG TAB [Concomitant]
     Route: 048

REACTIONS (5)
  - ASTHENIA [None]
  - HYPERHIDROSIS [None]
  - NAUSEA [None]
  - OEDEMA PERIPHERAL [None]
  - VOMITING [None]
